FAERS Safety Report 5235637-3 (Version None)
Quarter: 2007Q1

REPORT INFORMATION
  Report Type: 
  Country: None (occurrence: None)
  Receive Date: 20070212
  Receipt Date: 20070207
  Transmission Date: 20070707
  Serious: Yes (Hospitalization, Congenital Anomaly)
  Sender: FDA-Public Use
  Company Number: US-GLAXOSMITHKLINE-A0594995A

PATIENT
  Sex: Male
  Weight: 4.1 kg

DRUGS (6)
  1. PAXIL CR [Suspect]
     Dosage: 12.5MG PER DAY
     Dates: end: 20050301
  2. PRENATAL VITAMINS [Concomitant]
  3. FLU VACCINE [Concomitant]
     Indication: PROPHYLAXIS
     Dates: start: 20051026, end: 20051026
  4. ALLEGRA [Concomitant]
  5. GINGER [Concomitant]
  6. IRON [Concomitant]

REACTIONS (35)
  - ARRHYTHMIA [None]
  - ATRIAL SEPTAL DEFECT [None]
  - BLOOD PRESSURE INCREASED [None]
  - CARDIAC FAILURE CONGESTIVE [None]
  - CARDIOMEGALY [None]
  - CATATONIA [None]
  - CONVULSION [None]
  - CYANOSIS [None]
  - DEHYDRATION [None]
  - DEVELOPMENTAL DELAY [None]
  - DRUG EXPOSURE DURING PREGNANCY [None]
  - EATING DISORDER [None]
  - EMBOLIC STROKE [None]
  - ENCEPHALOMALACIA [None]
  - FACIAL PALSY [None]
  - HEART DISEASE CONGENITAL [None]
  - HEMIPARESIS [None]
  - INFANTILE SPASMS [None]
  - LOSS OF CONSCIOUSNESS [None]
  - OXYGEN SATURATION DECREASED [None]
  - PATENT DUCTUS ARTERIOSUS [None]
  - PSYCHOMOTOR SKILLS IMPAIRED [None]
  - PULMONARY OEDEMA [None]
  - RESPIRATORY ACIDOSIS [None]
  - RESPIRATORY DISTRESS [None]
  - SCREAMING [None]
  - SINUS BRADYCARDIA [None]
  - SKIN DISCOLOURATION [None]
  - TACHYPNOEA [None]
  - THROMBOSIS [None]
  - TRANSPOSITION OF THE GREAT VESSELS [None]
  - UNIVENTRICULAR HEART [None]
  - VENTRICULAR HYPOPLASIA [None]
  - VENTRICULAR SEPTAL DEFECT [None]
  - VISUAL ACUITY REDUCED [None]
